FAERS Safety Report 23177880 (Version 1)
Quarter: 2023Q4

REPORT INFORMATION
  Report Type: Spontaneous
  Country: ES (occurrence: ES)
  Receive Date: 20231113
  Receipt Date: 20231113
  Transmission Date: 20240109
  Serious: Yes (Hospitalization)
  Sender: FDA-Public Use
  Company Number: None

PATIENT
  Age: 53 Year
  Sex: Female
  Weight: 63 kg

DRUGS (2)
  1. LEVOFLOXACIN [Suspect]
     Active Substance: LEVOFLOXACIN
     Indication: Urinary tract infection
     Dosage: 500MG?ROUTE OF ADMIN.: INTRAVENOUS
     Route: 042
     Dates: start: 20231013, end: 20231015
  2. METAMIZOLE [Suspect]
     Active Substance: METAMIZOLE
     Indication: Urinary tract infection
     Dosage: 1 AMPOULE?ROUTE OF ADMIN.: INTRAVENOUS
     Route: 042
     Dates: start: 20231016, end: 20231016

REACTIONS (3)
  - Dizziness [Recovered/Resolved]
  - Epilepsy [Recovered/Resolved]
  - Dysgeusia [Recovered/Resolved]

NARRATIVE: CASE EVENT DATE: 20231016
